FAERS Safety Report 12537803 (Version 2)
Quarter: 2016Q3

REPORT INFORMATION
  Report Type: Spontaneous
  Country: US (occurrence: US)
  Receive Date: 20160707
  Receipt Date: 20160727
  Transmission Date: 20161109
  Serious: Yes (Other)
  Sender: FDA-Public Use
  Company Number: US-AKORN PHARMACEUTICALS-2016AKN00411

PATIENT
  Sex: Female

DRUGS (6)
  1. MYORISAN [Suspect]
     Active Substance: ISOTRETINOIN
     Indication: PYODERMA
     Dosage: 20 MG, UNK
     Route: 048
     Dates: start: 20160212, end: 20160525
  2. CYMBALTA DELAYED RELEASE [Concomitant]
  3. TRAMADOL. [Concomitant]
     Active Substance: TRAMADOL
  4. XANAX [Concomitant]
     Active Substance: ALPRAZOLAM
  5. AMBIEN [Concomitant]
     Active Substance: ZOLPIDEM TARTRATE
     Dosage: UNK MG, UNK
  6. MYORISAN [Suspect]
     Active Substance: ISOTRETINOIN
     Indication: PYODERMA
     Dosage: 40 MG, UNK
     Route: 048
     Dates: start: 20160212, end: 20160525

REACTIONS (13)
  - Nervous system disorder [Unknown]
  - Hypoaesthesia [Unknown]
  - Dry skin [Unknown]
  - Arthralgia [Unknown]
  - Autoimmune disorder [Unknown]
  - Burning sensation [Unknown]
  - Acne [Unknown]
  - Pain [Unknown]
  - Anxiety [Unknown]
  - Myalgia [Unknown]
  - Product use issue [Recovered/Resolved]
  - Depression [Unknown]
  - Lip dry [Unknown]

NARRATIVE: CASE EVENT DATE: 2016
